FAERS Safety Report 6177548-5 (Version None)
Quarter: 2009Q2

REPORT INFORMATION
  Report Type: 
  Country: None (occurrence: None)
  Receive Date: 20090504
  Receipt Date: 20090428
  Transmission Date: 20091009
  Serious: Yes (Hospitalization, Other)
  Sender: FDA-Public Use
  Company Number: US-ELI_LILLY_AND_COMPANY-US200904006792

PATIENT
  Sex: Female

DRUGS (2)
  1. HUMALOG MIX 75/25 [Suspect]
     Dosage: UNK, EACH EVENING
     Dates: start: 20090101
  2. HUMALOG [Suspect]

REACTIONS (3)
  - BLOOD GLUCOSE DECREASED [None]
  - FEELING COLD [None]
  - HYPOGLYCAEMIC UNCONSCIOUSNESS [None]
